FAERS Safety Report 7031169-0 (Version None)
Quarter: 2010Q4

REPORT INFORMATION
  Report Type: 
  Country: None (occurrence: None)
  Receive Date: 20101006
  Receipt Date: 20100928
  Transmission Date: 20110411
  Serious: Yes (Hospitalization)
  Sender: FDA-Public Use
  Company Number: US-AMGEN-US373943

PATIENT
  Sex: Female

DRUGS (13)
  1. NPLATE [Suspect]
     Indication: IDIOPATHIC THROMBOCYTOPENIC PURPURA
     Dates: start: 20091029, end: 20100217
  2. CORTICOSTEROIDS [Concomitant]
  3. RITUXIMAB [Concomitant]
  4. CELEXA [Concomitant]
  5. SINGULAIR [Concomitant]
  6. VYTORIN [Concomitant]
  7. MICARDIS [Concomitant]
  8. PRILOSEC [Concomitant]
  9. TOPAMAX [Concomitant]
  10. LEVOXYL [Concomitant]
  11. MAGNESIUM [Concomitant]
  12. FOLIC ACID [Concomitant]
  13. ALBUTEROL [Concomitant]

REACTIONS (1)
  - ACUTE RESPIRATORY DISTRESS SYNDROME [None]
